FAERS Safety Report 21308962 (Version 1)
Quarter: 2022Q3

REPORT INFORMATION
  Report Type: Spontaneous
  Country: GB (occurrence: GB)
  Receive Date: 20220908
  Receipt Date: 20220908
  Transmission Date: 20221027
  Serious: Yes (Death, Other)
  Sender: FDA-Public Use
  Company Number: None

PATIENT
  Age: 69 Year
  Sex: Female

DRUGS (1)
  1. OLANZAPINE [Suspect]
     Active Substance: OLANZAPINE
     Indication: Product used for unknown indication
     Dosage: UNK UNK, UNKNOWN
     Route: 065

REACTIONS (7)
  - Aspiration [Fatal]
  - Product prescribing error [Fatal]
  - Dysphagia [Recovered/Resolved]
  - Choking [Unknown]
  - Pneumonia [Recovered/Resolved]
  - Fall [Unknown]
  - Sepsis [Unknown]

NARRATIVE: CASE EVENT DATE: 20170101
